FAERS Safety Report 6749746-0 (Version None)
Quarter: 2010Q2

REPORT INFORMATION
  Report Type: 
  Country: None (occurrence: None)
  Receive Date: 20100527
  Receipt Date: 20100514
  Transmission Date: 20101027
  Serious: Yes (Other)
  Sender: FDA-Public Use
  Company Number: AUR-APL-2010-00962

PATIENT
  Age: 60 Year
  Sex: Male
  Weight: 77.4 kg

DRUGS (8)
  1. CITALOPRAM [Suspect]
     Indication: DEPRESSION
     Dosage: 20MG, ORAL
     Route: 048
     Dates: end: 20100212
  2. CLOZARIL [Suspect]
     Indication: SCHIZOPHRENIA
     Dosage: 400MG, DAILY, ORAL
     Route: 048
     Dates: start: 20091023, end: 20100331
  3. ASPIRIN [Concomitant]
  4. GLICLAZIDE [Concomitant]
  5. IRON [Concomitant]
  6. METFORMIN [Concomitant]
  7. OMEPRAZOLE [Concomitant]
  8. PROPRANOLOL [Concomitant]

REACTIONS (5)
  - BLOOD SODIUM DECREASED [None]
  - DRUG LEVEL INCREASED [None]
  - LIVER FUNCTION TEST ABNORMAL [None]
  - PNEUMONIA [None]
  - TOBACCO USER [None]
